FAERS Safety Report 12167476 (Version 1)
Quarter: 2016Q1

REPORT INFORMATION
  Report Type: Spontaneous
  Country: US (occurrence: US)
  Receive Date: 20160310
  Receipt Date: 20160310
  Transmission Date: 20160526
  Serious: No
  Sender: FDA-Public Use
  Company Number: US-PFIZER INC-2016146265

PATIENT
  Age: 7 Year
  Sex: Male
  Weight: 24.36 kg

DRUGS (5)
  1. QUILLIVANT XR [Suspect]
     Active Substance: METHYLPHENIDATE HYDROCHLORIDE
     Dosage: 2.5 ML, FOR A WEEK
  2. GUANFACINE. [Concomitant]
     Active Substance: GUANFACINE
     Indication: RESTLESSNESS
     Dosage: ONE AND HALF PILLS A DAY, 1 PILL IN THE MORNING, HALF A PILL AT NIGHT
  3. QUILLIVANT XR [Suspect]
     Active Substance: METHYLPHENIDATE HYDROCHLORIDE
     Indication: ATTENTION DEFICIT/HYPERACTIVITY DISORDER
     Dosage: 2 ML, DAILY (2ML A DAY FOR A WEEK AND A HALF)
     Dates: start: 201601
  4. QUILLIVANT XR [Suspect]
     Active Substance: METHYLPHENIDATE HYDROCHLORIDE
     Dosage: 4 ML, 1X/DAY (FOR THE LAST 3 TO 4 WEEKS)
  5. FLUOXETINE [Concomitant]
     Active Substance: FLUOXETINE HYDROCHLORIDE
     Indication: ANXIETY
     Dosage: 2.5 ML, DAILY

REACTIONS (1)
  - Dysphemia [Not Recovered/Not Resolved]
